FAERS Safety Report 14288147 (Version 2)
Quarter: 2017Q4

REPORT INFORMATION
  Report Type: Spontaneous
  Country: US (occurrence: US)
  Receive Date: 20171215
  Receipt Date: 20171227
  Transmission Date: 20180321
  Serious: Yes (Other)
  Sender: FDA-Public Use
  Company Number: US-UNICHEM PHARMACEUTICALS (USA) INC-UCM201712-000306

PATIENT
  Age: 72 Year
  Sex: Male

DRUGS (4)
  1. HYDROCHLOROTHIAZIDE. [Suspect]
     Active Substance: HYDROCHLOROTHIAZIDE
     Indication: HYPERTENSION
     Dates: start: 20171115
  2. AMLODIPINE [Suspect]
     Active Substance: AMLODIPINE BESYLATE
     Indication: HYPERTENSION
     Dates: start: 20171027
  3. PREDNISONE. [Concomitant]
     Active Substance: PREDNISONE
  4. THREE BENADRYL [Concomitant]

REACTIONS (3)
  - Lip swelling [Recovered/Resolved]
  - Angioedema [Recovered/Resolved]
  - Therapeutic response unexpected [Recovered/Resolved]
